FAERS Safety Report 9599856 (Version 1)
Quarter: 2013Q4

REPORT INFORMATION
  Report Type: Spontaneous
  Country: US (occurrence: US)
  Receive Date: 20131004
  Receipt Date: 20131004
  Transmission Date: 20140711
  Serious: No
  Sender: FDA-Public Use
  Company Number: US-AMGEN-USASP2013031289

PATIENT
  Age: 60 Year
  Sex: Female
  Weight: 82.54 kg

DRUGS (5)
  1. ENBREL [Suspect]
     Indication: PRODUCT USED FOR UNKNOWN INDICATION
     Dosage: 50 MG, QWK
     Route: 058
  2. HUMIRA [Concomitant]
     Indication: RHEUMATOID ARTHRITIS
     Dosage: PEN KIT40MG/0.8
  3. PREDNISONE [Concomitant]
     Dosage: 5 MG, UNK
  4. ALEVE [Concomitant]
     Indication: PAIN
     Dosage: 220 MG, AS NECESSARY
  5. CALCIUM +D                         /00944201/ [Concomitant]
     Dosage: UNK

REACTIONS (1)
  - Drug ineffective [Unknown]
